FAERS Safety Report 18564925 (Version 1)
Quarter: 2020Q4

REPORT INFORMATION
  Report Type: Spontaneous
  Country: BG (occurrence: BG)
  Receive Date: 20201201
  Receipt Date: 20201201
  Transmission Date: 20210114
  Serious: Yes (Life-Threatening)
  Sender: FDA-Public Use
  Company Number: BG-TEVA-2020-BG-1852750

PATIENT
  Age: 39 Year
  Weight: 50 kg

DRUGS (1)
  1. CIPROFLOXACIN - COATED TABLET [Suspect]
     Active Substance: CIPROFLOXACIN
     Dosage: 500 MILLIGRAM DAILY; 1 TABLET ONLY ONCE
     Route: 048
     Dates: start: 20200919, end: 20200919

REACTIONS (7)
  - Paraesthesia [Recovered/Resolved]
  - Syncope [Recovered/Resolved]
  - Pollakiuria [Recovered/Resolved]
  - Pruritus [Recovered/Resolved]
  - Dyspnoea [Recovered/Resolved]
  - Vomiting [Recovered/Resolved]
  - Dysarthria [Recovered/Resolved]

NARRATIVE: CASE EVENT DATE: 20200919
